FAERS Safety Report 9706726 (Version 1)
Quarter: 2013Q4

REPORT INFORMATION
  Report Type: Spontaneous
  Country: US (occurrence: US)
  Receive Date: 20131125
  Receipt Date: 20131125
  Transmission Date: 20140711
  Serious: No
  Sender: FDA-Public Use
  Company Number: US-009507513-1311USA006996

PATIENT
  Age: 62 Year
  Sex: Female

DRUGS (2)
  1. DULERA [Suspect]
     Indication: ASTHMA
     Dosage: ONE INHALATION IN THE AM AND ONE LN THE PM
     Route: 055
     Dates: start: 201111
  2. BUDESONIDE [Concomitant]

REACTIONS (1)
  - Weight increased [Not Recovered/Not Resolved]
